FAERS Safety Report 25766663 (Version 1)
Quarter: 2025Q3

REPORT INFORMATION
  Report Type: Spontaneous
  Country: EU (occurrence: EU)
  Receive Date: 20250905
  Receipt Date: 20250905
  Transmission Date: 20251020
  Serious: Yes (Life-Threatening)
  Sender: NOVO NORDISK
  Company Number: None

PATIENT
  Age: 51 Year
  Sex: Female

DRUGS (7)
  1. RYBELSUS [Suspect]
     Active Substance: SEMAGLUTIDE
     Indication: Weight control
     Dosage: 3 MG, QD (1 TABLET PER DAY)
     Route: 048
     Dates: start: 20250730, end: 20250817
  2. VENLAFAXINE [Concomitant]
     Active Substance: VENLAFAXINE HYDROCHLORIDE
     Indication: Pain management
     Dosage: 37.5 MG, QD (1XDAY)
     Route: 048
  3. VENLAFAXINE [Concomitant]
     Active Substance: VENLAFAXINE HYDROCHLORIDE
     Indication: Affective disorder
  4. BISOPROLOL [Concomitant]
     Active Substance: BISOPROLOL
     Indication: Palpitations
     Dosage: 2.5 MG, QD (1XDAY)
     Route: 048
  5. MEDITHYROX [Concomitant]
     Indication: Hypothyroidism
     Dosage: 50 ?G, QD(1XMORNING)
     Route: 048
  6. FEXOFENADINE [Concomitant]
     Active Substance: FEXOFENADINE HYDROCHLORIDE
     Indication: Cold urticaria
     Dosage: 120 MG, QD (1XDAY)
     Route: 048
  7. ATORVASTATIN [Concomitant]
     Active Substance: ATORVASTATIN
     Indication: Blood cholesterol
     Dosage: 10 MG, QD (1XEVENING)
     Route: 048

REACTIONS (8)
  - Depressed mood [Recovering/Resolving]
  - Mental fatigue [Recovering/Resolving]
  - Fear [Recovering/Resolving]
  - Feeling of despair [Recovering/Resolving]
  - Somniphobia [Recovering/Resolving]
  - Indifference [Recovering/Resolving]
  - Fatigue [Recovering/Resolving]
  - Off label use [Recovering/Resolving]

NARRATIVE: CASE EVENT DATE: 20250806
